FAERS Safety Report 6772839-9 (Version None)
Quarter: 2010Q2

REPORT INFORMATION
  Report Type: 
  Country: None (occurrence: None)
  Receive Date: 20100616
  Receipt Date: 20100609
  Transmission Date: 20101027
  Serious: Yes (Life-Threatening, Hospitalization, Disabling, Other)
  Sender: FDA-Public Use
  Company Number: GB-TEVA-237394ISR

PATIENT
  Age: 18 Year
  Sex: Female

DRUGS (2)
  1. DIAZEPAM [Suspect]
  2. HPV VACCINE (CERVARIX) [Suspect]
     Indication: IMMUNISATION
     Route: 030
     Dates: start: 20090516, end: 20090516

REACTIONS (4)
  - CONVULSION [None]
  - EMOTIONAL DISORDER [None]
  - ENCEPHALITIS [None]
  - GROIN ABSCESS [None]
